FAERS Safety Report 15976888 (Version 1)
Quarter: 2019Q1

REPORT INFORMATION
  Report Type: Spontaneous
  Country: US (occurrence: US)
  Receive Date: 20190218
  Receipt Date: 20190218
  Transmission Date: 20190418
  Serious: No
  Sender: FDA-Public Use
  Company Number: US-HERON THERAPEUTICS, INC-HRTX-2018-000517

PATIENT
  Sex: Male

DRUGS (1)
  1. SUSTOL [Suspect]
     Active Substance: GRANISETRON
     Indication: PRODUCT USED FOR UNKNOWN INDICATION
     Dosage: 10 MG/0.4 ML SINGLE
     Route: 058

REACTIONS (2)
  - Injection site exfoliation [Unknown]
  - Injection site erythema [Unknown]
